FAERS Safety Report 12397290 (Version 1)
Quarter: 2016Q2

REPORT INFORMATION
  Report Type: Spontaneous
  Country: US (occurrence: US)
  Receive Date: 20160524
  Receipt Date: 20160524
  Transmission Date: 20160815
  Serious: No
  Sender: FDA-Public Use
  Company Number: US-PFIZER INC-2016246014

PATIENT
  Age: 86 Year
  Sex: Female
  Weight: 64.41 kg

DRUGS (2)
  1. DILTIAZEM HCL [Suspect]
     Active Substance: DILTIAZEM HYDROCHLORIDE
     Dosage: 240 MG, 1X/DAY
     Dates: start: 201601, end: 201604
  2. DIGOXIN. [Suspect]
     Active Substance: DIGOXIN
     Dosage: 125 UG, ALTERNATE DAY
     Dates: start: 201601, end: 201604

REACTIONS (1)
  - Drug ineffective [Unknown]
